FAERS Safety Report 6522364-5 (Version None)
Quarter: 2009Q4

REPORT INFORMATION
  Report Type: 
  Country: None (occurrence: None)
  Receive Date: 20091230
  Receipt Date: 20091217
  Transmission Date: 20100525
  Serious: Yes (Life-Threatening, Hospitalization)
  Sender: FDA-Public Use
  Company Number: FR-AMGEN-US381868

PATIENT
  Sex: Male
  Weight: 55 kg

DRUGS (8)
  1. ENBREL [Suspect]
     Indication: RHEUMATOID ARTHRITIS
     Route: 058
     Dates: start: 20080601, end: 20091001
  2. TRIATEC [Concomitant]
     Dosage: UNKNOWN
     Route: 048
  3. DOLIPRANE [Concomitant]
     Dosage: UNKNOWN
     Route: 048
  4. LASILIX [Concomitant]
     Dosage: UNKNOWN
     Route: 065
  5. CARDENSIEL [Concomitant]
     Dosage: UNKNOWN
     Route: 048
  6. INIPOMP [Concomitant]
     Dosage: UNKNOWN
     Route: 065
  7. CORTANCYL [Concomitant]
     Indication: RHEUMATOID ARTHRITIS
     Route: 048
  8. PREVISCAN [Concomitant]
     Dosage: UNKNOWN
     Route: 048

REACTIONS (4)
  - ACUTE PRERENAL FAILURE [None]
  - CARDIAC FAILURE [None]
  - COLON CANCER METASTATIC [None]
  - DEHYDRATION [None]
